FAERS Safety Report 10032742 (Version 2)
Quarter: 2014Q1

REPORT INFORMATION
  Report Type: Report from Study
  Country: KR (occurrence: KR)
  Receive Date: 20140324
  Receipt Date: 20140324
  Transmission Date: 20141002
  Serious: Yes (Life-Threatening)
  Sender: FDA-Public Use
  Company Number: KR-IAC JAPAN XML-GBR-2014-0016893

PATIENT
  Age: 45 Year
  Sex: Male
  Weight: 64.2 kg

DRUGS (3)
  1. BTDS PATCH [Suspect]
     Indication: ANALGESIC THERAPY
     Dosage: 5 MCG, Q1H
     Route: 062
     Dates: start: 20131230
  2. BTDS PATCH [Suspect]
     Dosage: UNK
     Route: 062
     Dates: start: 20131216, end: 20131220
  3. ACUPAN [Concomitant]
     Indication: BACK PAIN
     Dosage: UNK
     Dates: start: 20140115, end: 20140115

REACTIONS (1)
  - Post procedural infection [Recovering/Resolving]
